FAERS Safety Report 5219429-7 (Version None)
Quarter: 2007Q1

REPORT INFORMATION
  Report Type: 
  Country: None (occurrence: None)
  Receive Date: 20070125
  Receipt Date: 20070115
  Transmission Date: 20070707
  Serious: Yes (Other)
  Sender: FDA-Public Use
  Company Number: CN-SANOFI-SYNTHELABO-A01200700570

PATIENT
  Age: 82 Year
  Sex: Male

DRUGS (2)
  1. ENOXAPARIN SODIUM [Concomitant]
     Indication: ACUTE MYOCARDIAL INFARCTION
     Dosage: UNK
     Route: 058
     Dates: start: 20060310, end: 20060317
  2. PLAVIX [Suspect]
     Indication: ACUTE MYOCARDIAL INFARCTION
     Dosage: 300 MG LOADING DOSE FOLLOWED BY 75 MG DAILY
     Route: 048
     Dates: start: 20060312, end: 20060324

REACTIONS (1)
  - ASTHMA [None]
